FAERS Safety Report 9880875 (Version 1)
Quarter: 2014Q1

REPORT INFORMATION
  Report Type: Spontaneous
  Country: SG (occurrence: None)
  Receive Date: 20140205
  Receipt Date: 20140205
  Transmission Date: 20141002
  Serious: Yes (Other)
  Sender: FDA-Public Use
  Company Number: SYM-2014-15740

PATIENT
  Age: 43 Year
  Sex: Female

DRUGS (4)
  1. METRONIDAZOLE (METRONIDAZOLE) [Suspect]
     Indication: PRODUCT USED FOR UNKNOWN INDICATION
  2. PARACETAMOL (PARACETAMOL) [Suspect]
     Indication: PRODUCT USED FOR UNKNOWN INDICATION
  3. BACTRIM [Suspect]
     Indication: PRODUCT USED FOR UNKNOWN INDICATION
  4. IBUPROFEN (IBUPROFEN) [Suspect]
     Indication: PRODUCT USED FOR UNKNOWN INDICATION

REACTIONS (1)
  - Eye swelling [None]
